FAERS Safety Report 24653860 (Version 1)
Quarter: 2024Q4

REPORT INFORMATION
  Report Type: Spontaneous
  Country: US (occurrence: None)
  Receive Date: 20241121
  Receipt Date: 20241121
  Transmission Date: 20250115
  Serious: Yes (Disabling, Other)
  Sender: Public
  Company Number: None

PATIENT
  Age: 46 Year
  Sex: Female
  Weight: 99.9 kg

DRUGS (6)
  1. ZEPBOUND [Suspect]
     Active Substance: TIRZEPATIDE
     Indication: Weight decreased
     Dates: start: 20240712, end: 20240914
  2. CYMBALTA [Concomitant]
     Active Substance: DULOXETINE HYDROCHLORIDE
  3. DEXEDRINE [Concomitant]
     Active Substance: DEXTROAMPHETAMINE SULFATE
  4. LABETALOL [Concomitant]
     Active Substance: LABETALOL
  5. lasix hctz [Concomitant]
  6. VALIUM [Concomitant]

REACTIONS (4)
  - Vomiting [None]
  - Mood altered [None]
  - Personality change [None]
  - Impaired gastric emptying [None]

NARRATIVE: CASE EVENT DATE: 20240914
